FAERS Safety Report 8821641 (Version 1)
Quarter: 2012Q4

REPORT INFORMATION
  Report Type: Report from Study
  Country: DE (occurrence: DE)
  Receive Date: 20121002
  Receipt Date: 20121002
  Transmission Date: 20130627
  Serious: Yes (Hospitalization)
  Sender: FDA-Public Use
  Company Number: DE-ASTELLAS-2012EU006838

PATIENT
  Age: 76 Year
  Sex: Male
  Weight: 70 kg

DRUGS (1)
  1. UNSPECIFIED INGREDIENT [Suspect]
     Indication: PROSTATE CANCER METASTATIC
     Dosage: 160 mg, UID/QD
     Route: 048
     Dates: start: 20120816

REACTIONS (1)
  - Bladder tamponade [Recovered/Resolved]
